FAERS Safety Report 17359417 (Version 1)
Quarter: 2020Q1

REPORT INFORMATION
  Report Type: Spontaneous
  Country: US (occurrence: US)
  Receive Date: 20200203
  Receipt Date: 20200203
  Transmission Date: 20200409
  Serious: No
  Sender: FDA-Public Use
  Company Number: US-LUPIN PHARMACEUTICALS INC.-2020-00268

PATIENT
  Age: 49 Year
  Sex: Female
  Weight: 56.69 kg

DRUGS (5)
  1. CAYSTON INHALATION SOLUTION [Concomitant]
     Indication: CYSTIC FIBROSIS
     Dosage: ALTERNATES EVERY 3RD MONTH
     Route: 065
  2. TOBRAMYCIN INHALATION SOLUTION USP, 300 MG/5 ML [Suspect]
     Active Substance: TOBRAMYCIN
     Dosage: 1 DOSAGE FORM, BID (AMPULE)
     Dates: start: 20190807
  3. TOBRAMYCIN INHALATION SOLUTION USP, 300 MG/5 ML [Suspect]
     Active Substance: TOBRAMYCIN
     Dosage: 1 DOSAGE FORM, BID (AMPULE)
     Dates: start: 20191107, end: 201911
  4. COLISTIMETHATE NEBULIZER SOLUTION [Concomitant]
     Indication: CYSTIC FIBROSIS
     Dosage: ALTERNATES EVERY 3RD MONTH
     Route: 065
  5. TOBRAMYCIN INHALATION SOLUTION USP, 300 MG/5 ML [Suspect]
     Active Substance: TOBRAMYCIN
     Indication: CYSTIC FIBROSIS
     Dosage: 1 DOSAGE FORM, BID (AMPULE)
     Dates: start: 20190201

REACTIONS (4)
  - Drug ineffective [Unknown]
  - Product odour abnormal [Unknown]
  - Product substitution issue [Unknown]
  - Product taste abnormal [Unknown]

NARRATIVE: CASE EVENT DATE: 20190201
